FAERS Safety Report 9540305 (Version 2)
Quarter: 2013Q3

REPORT INFORMATION
  Report Type: Spontaneous
  Country: AT (occurrence: AT)
  Receive Date: 20130920
  Receipt Date: 20130926
  Transmission Date: 20140515
  Serious: Yes (Other)
  Sender: FDA-Public Use
  Company Number: AT-ASTRAZENECA-2013SE69823

PATIENT
  Age: 58 Year
  Sex: Female
  Weight: 58 kg

DRUGS (2)
  1. CRESTOR [Suspect]
     Indication: LOW DENSITY LIPOPROTEIN INCREASED
     Route: 048
     Dates: start: 2013, end: 2013
  2. SIMVASTATIN [Concomitant]
     Dates: end: 2013

REACTIONS (1)
  - Aphasia [Recovered/Resolved]
